FAERS Safety Report 6314390-6 (Version None)
Quarter: 2009Q3

REPORT INFORMATION
  Report Type: 
  Country: None (occurrence: None)
  Receive Date: 20090819
  Receipt Date: 20090813
  Transmission Date: 20100115
  Serious: Yes (Other)
  Sender: FDA-Public Use
  Company Number: US-ROXANE LABORATORIES, INC.-2009-RO-00830RO

PATIENT
  Age: 52 Year
  Sex: Female

DRUGS (12)
  1. PREDNISONE [Suspect]
     Indication: LEUKOCYTOCLASTIC VASCULITIS
  2. PREDNISONE [Suspect]
  3. MYCOPHENOLATE MOFETIL [Suspect]
     Indication: LEUKOCYTOCLASTIC VASCULITIS
     Dosage: 500 MG
  4. MYCOPHENOLATE MOFETIL [Suspect]
     Dosage: 1000 MG
  5. MONTELUKAST SODIUM [Suspect]
     Indication: LEUKOCYTOCLASTIC VASCULITIS
     Dosage: 10 MG
  6. DAPSONE [Suspect]
     Indication: LEUKOCYTOCLASTIC VASCULITIS
     Dosage: 100 MG
  7. HYDROXYCHLOROQUINE SULFATE [Suspect]
     Indication: LEUKOCYTOCLASTIC VASCULITIS
     Dosage: 400 MG
  8. COLCHICINE [Suspect]
     Indication: LEUKOCYTOCLASTIC VASCULITIS
     Dosage: 1.2 MG
  9. OLSALAZINE SODIUM [Suspect]
     Indication: LEUKOCYTOCLASTIC VASCULITIS
     Dosage: 1000 MG
  10. SIROLIMUS [Suspect]
     Indication: LEUKOCYTOCLASTIC VASCULITIS
  11. SIROLIMUS [Suspect]
     Dosage: 1 MG
  12. SIROLIMUS [Suspect]
     Dosage: 2 MG

REACTIONS (7)
  - DIABETES MELLITUS [None]
  - DRUG DEPENDENCE [None]
  - DRUG INEFFECTIVE [None]
  - DYSLIPIDAEMIA [None]
  - GLOMERULAR FILTRATION RATE INCREASED [None]
  - OEDEMA PERIPHERAL [None]
  - WEIGHT INCREASED [None]
